FAERS Safety Report 9209326 (Version 1)
Quarter: 2013Q2

REPORT INFORMATION
  Report Type: Spontaneous
  Country: US (occurrence: None)
  Receive Date: 20130403
  Receipt Date: 20130403
  Transmission Date: 20140414
  Serious: Yes (Life-Threatening, Disabling, Other)
  Sender: FDA-Public Use
  Company Number: None

PATIENT
  Age: 91 Year
  Sex: Male
  Weight: 74.84 kg

DRUGS (1)
  1. MYCOPHENOLATE [Suspect]
     Indication: DERMATITIS
     Dosage: 1500 MG 2 A DAY ORALLY
     Route: 048
     Dates: start: 20130301, end: 20130302

REACTIONS (7)
  - Monoplegia [None]
  - Paralysis [None]
  - Immobile [None]
  - Renal disorder [None]
  - Gastrointestinal disorder [None]
  - Tremor [None]
  - Tremor [None]
